FAERS Safety Report 5020074-7 (Version None)
Quarter: 2006Q2

REPORT INFORMATION
  Report Type: 
  Country: None (occurrence: None)
  Receive Date: 20060607
  Receipt Date: 20060530
  Transmission Date: 20061013
  Serious: Yes (Hospitalization)
  Sender: FDA-Public Use
  Company Number: AU-GLAXOSMITHKLINE-B0426360A

PATIENT
  Age: 71 Year
  Sex: Male

DRUGS (9)
  1. AVANDIA [Suspect]
     Dosage: 8MG PER DAY
     Dates: start: 20050901
  2. DILTIAZEM [Concomitant]
  3. METFORMIN [Concomitant]
  4. GLICLAZIDE [Concomitant]
  5. IRBESARTAN - HYDROCHLOROTHIAZIDE [Concomitant]
  6. ESOMEPRAZOLE [Concomitant]
  7. CLOPIDOGREL [Concomitant]
  8. IMIPRAMINE [Concomitant]
  9. PRAVASTATIN [Concomitant]

REACTIONS (4)
  - DYSPNOEA EXACERBATED [None]
  - OEDEMA PERIPHERAL [None]
  - PERICARDIAL EFFUSION [None]
  - WEIGHT INCREASED [None]
